FAERS Safety Report 6729789-3 (Version None)
Quarter: 2010Q2

REPORT INFORMATION
  Report Type: 
  Country: None (occurrence: None)
  Receive Date: 20100518
  Receipt Date: 20100506
  Transmission Date: 20101027
  Serious: Yes (Hospitalization)
  Sender: FDA-Public Use
  Company Number: SE-PFIZER INC-2010057109

PATIENT
  Age: 76 Year
  Sex: Male

DRUGS (12)
  1. CORVERT [Suspect]
     Dosage: 0.44 MG, SINGLE
     Route: 042
     Dates: start: 20100402, end: 20100402
  2. HEMINEVRIN [Concomitant]
     Dosage: UNK
  3. OXYCONTIN [Concomitant]
     Dosage: UNK
  4. ACTRAPID [Concomitant]
     Dosage: UNK
  5. ZELDOX /SWE/ [Concomitant]
     Dosage: UNK
  6. NOREPINEPHRINE [Concomitant]
     Dosage: UNK
  7. PULMICORT [Concomitant]
     Dosage: UNK
  8. PRIMPERAN TAB [Concomitant]
     Dosage: UNK
  9. ALVEDON [Concomitant]
     Dosage: UNK
  10. CLOXACILLIN SODIUM [Concomitant]
     Dosage: UNK
  11. FURIX [Concomitant]
  12. COMBIVENT [Concomitant]
     Dosage: UNK

REACTIONS (1)
  - VENTRICULAR FIBRILLATION [None]
